FAERS Safety Report 10328588 (Version 1)
Quarter: 2014Q3

REPORT INFORMATION
  Report Type: Spontaneous
  Country: US (occurrence: US)
  Receive Date: 20140721
  Receipt Date: 20140721
  Transmission Date: 20150326
  Serious: Yes (Other)
  Sender: FDA-Public Use
  Company Number: US-ELI_LILLY_AND_COMPANY-US201407006096

PATIENT
  Age: 4 Year
  Sex: Female

DRUGS (1)
  1. CECLOR [Suspect]
     Active Substance: CEFACLOR
     Dosage: 125 MG, TID
     Route: 065
     Dates: start: 20140619, end: 20140621

REACTIONS (7)
  - Urticaria [Recovered/Resolved]
  - Vomiting [Recovered/Resolved]
  - Joint swelling [Not Recovered/Not Resolved]
  - Rash [Not Recovered/Not Resolved]
  - Diarrhoea [Recovered/Resolved]
  - Eye swelling [Recovered/Resolved]
  - Arthralgia [Not Recovered/Not Resolved]

NARRATIVE: CASE EVENT DATE: 20140624
